FAERS Safety Report 4631783-3 (Version None)
Quarter: 2005Q2

REPORT INFORMATION
  Report Type: 
  Country: None (occurrence: None)
  Receive Date: 20050410
  Receipt Date: 20050328
  Transmission Date: 20051028
  Serious: Yes (Death, Hospitalization, Other)
  Sender: FDA-Public Use
  Company Number: JP-JNJFOC-20031201119

PATIENT
  Sex: Male
  Weight: 54.75 kg

DRUGS (26)
  1. REMICADE [Suspect]
     Route: 041
  2. REMICADE [Suspect]
     Route: 041
  3. REMICADE [Suspect]
     Indication: RHEUMATOID ARTHRITIS
     Route: 041
  4. AZULFIDINE [Suspect]
     Indication: DRUG USE FOR UNKNOWN INDICATION
     Route: 065
  5. RHEUMATREX [Suspect]
     Route: 049
  6. RHEUMATREX [Suspect]
     Route: 049
  7. RHEUMATREX [Suspect]
     Indication: RHEUMATOID ARTHRITIS
     Route: 049
  8. PREDNISOLONE [Concomitant]
     Indication: RHEUMATOID ARTHRITIS
     Route: 049
  9. METALCAPTASE [Concomitant]
     Indication: RHEUMATOID ARTHRITIS
     Route: 049
  10. NABOAL SR [Concomitant]
     Indication: RHEUMATOID ARTHRITIS
     Route: 049
  11. FOLIAMIN [Concomitant]
     Route: 049
  12. DAI MEDIN [Concomitant]
     Indication: VITAMIN SUPPLEMENTATION
     Route: 049
  13. CALFALEAD [Concomitant]
     Indication: OSTEOPOROSIS
     Route: 049
  14. SELBEX [Concomitant]
     Route: 049
  15. INSIDE PAP [Concomitant]
     Route: 065
  16. VOLTAREN [Concomitant]
     Indication: RHEUMATOID ARTHRITIS
     Route: 054
  17. ACINON [Concomitant]
     Indication: GASTRITIS
     Route: 049
  18. PENFILL R [Concomitant]
     Route: 065
  19. KAMAG [Concomitant]
     Indication: CONSTIPATION
     Route: 049
  20. GASMOTIN [Concomitant]
     Route: 042
  21. METHOTREXATE [Concomitant]
     Indication: RHEUMATOID ARTHRITIS
     Route: 049
  22. ADONA [Concomitant]
     Route: 049
  23. GANATON [Concomitant]
     Route: 049
  24. TEMELIN [Concomitant]
     Route: 049
  25. SM POWDER [Concomitant]
     Route: 049
  26. INSULIN [Concomitant]

REACTIONS (6)
  - ANAEMIA [None]
  - BLISTER [None]
  - CARDIAC FAILURE [None]
  - DERMATITIS BULLOUS [None]
  - HYPONATRAEMIA [None]
  - THROMBOCYTOPENIA [None]
